FAERS Safety Report 7627735-1 (Version None)
Quarter: 2011Q3

REPORT INFORMATION
  Report Type: 
  Country: None (occurrence: None)
  Receive Date: 20110721
  Receipt Date: 20110713
  Transmission Date: 20111222
  Serious: Yes (Other)
  Sender: FDA-Public Use
  Company Number: GB-PFIZER INC-2011061383

PATIENT
  Age: 61 Year
  Sex: Female
  Weight: 54 kg

DRUGS (2)
  1. REVATIO [Suspect]
     Dosage: 20 MG, 2X/DAY
     Route: 048
  2. AMLODIPINE [Concomitant]
     Indication: RAYNAUD'S PHENOMENON
     Dosage: 10 MG, UNK
     Route: 048

REACTIONS (2)
  - RAYNAUD'S PHENOMENON [None]
  - HEADACHE [None]
